FAERS Safety Report 4308083-4 (Version None)
Quarter: 2004Q1

REPORT INFORMATION
  Report Type: 
  Country: None (occurrence: None)
  Receive Date: 20040301
  Receipt Date: 20030501
  Transmission Date: 20041129
  Serious: No
  Sender: FDA-Public Use
  Company Number: US-BRISTOL-MYERS SQUIBB COMPANY-12260832

PATIENT
  Age: 60 Year
  Sex: Female
  Weight: 109 kg

DRUGS (10)
  1. GLUCOPHAGE [Suspect]
     Indication: DIABETES MELLITUS
     Route: 048
     Dates: start: 20010101
  2. ACTOS [Concomitant]
  3. LANTUS [Concomitant]
  4. REGULAR INSULIN [Concomitant]
  5. ZERIT [Concomitant]
  6. ZYRTEC [Concomitant]
  7. LIPITOR [Concomitant]
  8. FLONASE [Concomitant]
  9. PATANOL [Concomitant]
  10. ASPIRIN [Concomitant]

REACTIONS (7)
  - ABDOMINAL DISCOMFORT [None]
  - DIABETES MELLITUS INADEQUATE CONTROL [None]
  - DIARRHOEA [None]
  - ERUCTATION [None]
  - NAUSEA [None]
  - RASH GENERALISED [None]
  - RASH PRURITIC [None]
